FAERS Safety Report 19968946 (Version 2)
Quarter: 2021Q4

REPORT INFORMATION
  Report Type: Spontaneous
  Country: US (occurrence: US)
  Receive Date: 20211019
  Receipt Date: 20211109
  Transmission Date: 20220303
  Serious: Yes (Other)
  Sender: FDA-Public Use
  Company Number: US-PFIZER INC-202100943698

PATIENT
  Age: 86 Year
  Sex: Female
  Weight: 55.34 kg

DRUGS (1)
  1. IBRANCE [Suspect]
     Active Substance: PALBOCICLIB
     Indication: Breast cancer
     Dosage: 125 MG, ONCE A DAY; 21 DAYS AND OFF 7
     Dates: start: 202107, end: 202110

REACTIONS (3)
  - Neuropathy peripheral [Unknown]
  - Nasopharyngitis [Not Recovered/Not Resolved]
  - Fibrosis [Not Recovered/Not Resolved]

NARRATIVE: CASE EVENT DATE: 20210101
